FAERS Safety Report 17206503 (Version 1)
Quarter: 2019Q4

REPORT INFORMATION
  Report Type: Spontaneous
  Country: US (occurrence: US)
  Receive Date: 20191227
  Receipt Date: 20191227
  Transmission Date: 20200122
  Serious: Yes (Life-Threatening, Other)
  Sender: FDA-Public Use
  Company Number: US-ROCHE-2468550

PATIENT
  Age: 67 Year
  Sex: Female
  Weight: 55.84 kg

DRUGS (3)
  1. XOLAIR [Suspect]
     Active Substance: OMALIZUMAB
     Dosage: 150MG/ML
     Route: 058
     Dates: start: 201901
  2. STIOLTO RESPIMAT [Concomitant]
     Active Substance: OLODATEROL HYDROCHLORIDE\TIOTROPIUM BROMIDE MONOHYDRATE
     Indication: ASTHMA
     Dosage: 2.5 PUFFS, INHALATION, BID, ONGOING
     Route: 065
     Dates: start: 201909
  3. XOLAIR [Suspect]
     Active Substance: OMALIZUMAB
     Indication: ASTHMA
     Dosage: 150MG/ML
     Route: 058
     Dates: start: 201809

REACTIONS (5)
  - Anaphylactic reaction [Unknown]
  - Respiratory arrest [Recovered/Resolved]
  - Myalgia [Unknown]
  - Bone pain [Unknown]
  - Musculoskeletal stiffness [Unknown]

NARRATIVE: CASE EVENT DATE: 20190924
